FAERS Safety Report 16563957 (Version 3)
Quarter: 2019Q4

REPORT INFORMATION
  Report Type: Report from Study
  Country: US (occurrence: US)
  Receive Date: 20190712
  Receipt Date: 20191022
  Transmission Date: 20200122
  Serious: Yes (Hospitalization)
  Sender: FDA-Public Use
  Company Number: US-ROCHE-2349688

PATIENT
  Age: 75 Year
  Sex: Female
  Weight: 63.3 kg

DRUGS (3)
  1. ATEZOLIZUMAB. [Suspect]
     Active Substance: ATEZOLIZUMAB
     Indication: FALLOPIAN TUBE CANCER
     Dosage: LAST ADMINISTERED DOSE: 01/MAR/2019
     Route: 042
     Dates: start: 20181214
  2. LIPOSOMAL DOXORUBICIN HYDROCHLORIDE [Suspect]
     Active Substance: DOXORUBICIN HYDROCHLORIDE
     Indication: FALLOPIAN TUBE CANCER
     Dosage: LAST DOSE ADMINISTERED ON 04/JUN/2019
     Route: 042
     Dates: start: 20181214
  3. BEVACIZUMAB. [Suspect]
     Active Substance: BEVACIZUMAB
     Indication: FALLOPIAN TUBE CANCER
     Dosage: LAST DOSE ADMINISTERED ON 04/JUN/2019
     Route: 042
     Dates: start: 20181214

REACTIONS (5)
  - Fatigue [Unknown]
  - Muscular weakness [Unknown]
  - Oesophagitis [Unknown]
  - Stomatitis [Unknown]
  - Small intestinal obstruction [Recovered/Resolved]

NARRATIVE: CASE EVENT DATE: 20181219
